FAERS Safety Report 6823961-X (Version None)
Quarter: 2010Q3

REPORT INFORMATION
  Report Type: 
  Country: None (occurrence: None)
  Receive Date: 20100708
  Receipt Date: 20060925
  Transmission Date: 20110219
  Serious: No
  Sender: FDA-Public Use
  Company Number: US-PFIZER INC-2006117767

PATIENT
  Sex: Female
  Weight: 82.1 kg

DRUGS (19)
  1. CHANTIX [Suspect]
     Indication: EX-TOBACCO USER
     Dates: start: 20060801, end: 20060901
  2. KLOR-CON [Concomitant]
  3. ATENOLOL [Concomitant]
  4. PREMARIN [Concomitant]
  5. XANAX [Concomitant]
  6. TRICOR [Concomitant]
  7. VYTORIN [Concomitant]
  8. HYZAAR [Concomitant]
  9. FORADIL [Concomitant]
  10. ALL OTHER THERAPEUTIC PRODUCTS [Concomitant]
  11. CALCIUM WITH VITAMIN D [Concomitant]
  12. ALBUTEROL [Concomitant]
  13. FLOVENT [Concomitant]
  14. CENTRUM SILVER [Concomitant]
  15. PREVACID [Concomitant]
  16. FEXOFENADINE [Concomitant]
  17. EPINASTINE [Concomitant]
  18. DARIFENACIN [Concomitant]
  19. MONTELUKAST [Concomitant]

REACTIONS (2)
  - ABDOMINAL DISCOMFORT [None]
  - MYALGIA [None]
